FAERS Safety Report 4828304-9 (Version None)
Quarter: 2005Q4

REPORT INFORMATION
  Report Type: 
  Country: None (occurrence: None)
  Receive Date: 20051115
  Receipt Date: 20051107
  Transmission Date: 20060501
  Serious: Yes (Other)
  Sender: FDA-Public Use
  Company Number: 2005AP05871

PATIENT
  Age: 20614 Day
  Sex: Female

DRUGS (3)
  1. CRESTOR [Suspect]
     Indication: TYPE IIA HYPERLIPIDAEMIA
     Route: 048
     Dates: start: 20051013, end: 20051016
  2. CRESTOR [Suspect]
     Route: 048
     Dates: start: 20051025, end: 20051025
  3. LIPITOR [Concomitant]

REACTIONS (2)
  - HYPOAESTHESIA [None]
  - MALAISE [None]
